FAERS Safety Report 6597133-0 (Version None)
Quarter: 2010Q1

REPORT INFORMATION
  Report Type: 
  Country: None (occurrence: None)
  Receive Date: 20100223
  Receipt Date: 20100217
  Transmission Date: 20100710
  Serious: Yes (Death, Hospitalization)
  Sender: FDA-Public Use
  Company Number: FR-ROCHE-505600

PATIENT
  Sex: Male

DRUGS (9)
  1. CAPECITABINE [Suspect]
     Indication: METASTATIC GASTRIC CANCER
     Dosage: GIVEN ON DAYS 2-15 EVERY THREE WEEKS CYCLE., 1000 MG/M2
     Route: 048
     Dates: start: 20061102, end: 20061123
  2. CAPECITABINE [Suspect]
     Route: 048
     Dates: start: 20061123, end: 20061218
  3. EPIRUBICIN HYDROCHLORIDE [Suspect]
     Indication: METASTATIC GASTRIC CANCER
     Dosage: GIVEN ON DAY ONE IN 45 CC OF SODIUM CHLORIDE 0.9 PERCENT IN 15 MINUTES.
     Route: 042
     Dates: start: 20061102, end: 20061123
  4. CISPLATIN [Suspect]
     Indication: METASTATIC GASTRIC CANCER
     Dosage: GIVEN ON DAY ONE IN 250 CC OF SODIUM CHLORIDE 0.9 PERCENT IN ONE HOUR INFUSION.
     Route: 042
     Dates: start: 20061102, end: 20061123
  5. TRANXENE [Suspect]
     Indication: ANXIOLYTIC THERAPY
     Route: 048
     Dates: end: 20061213
  6. HALDOL [Concomitant]
     Indication: NAUSEA
     Route: 048
     Dates: end: 20061214
  7. ACTISKENAN [Concomitant]
     Indication: PAIN
     Route: 048
     Dates: end: 20061217
  8. NEXIUM [Concomitant]
     Indication: PROPHYLAXIS
     Route: 048
     Dates: end: 20061219
  9. DURAGESIC-100 [Concomitant]
     Indication: PAIN
     Route: 062
     Dates: end: 20061214

REACTIONS (6)
  - APLASIA [None]
  - COMA [None]
  - GENERAL PHYSICAL HEALTH DETERIORATION [None]
  - MALIGNANT NEOPLASM PROGRESSION [None]
  - METASTATIC GASTRIC CANCER [None]
  - OVERDOSE [None]
